FAERS Safety Report 5272367-6 (Version None)
Quarter: 2007Q1

REPORT INFORMATION
  Report Type: 
  Country: None (occurrence: None)
  Receive Date: 20070320
  Receipt Date: 20070320
  Transmission Date: 20070707
  Serious: Yes (Hospitalization)
  Sender: FDA-Public Use
  Company Number: None

PATIENT
  Age: 54 Year
  Sex: Male
  Weight: 76.6579 kg

DRUGS (3)
  1. METOPROLOL SUCCINATE [Suspect]
     Indication: BLOOD PRESSURE
     Dates: start: 20070212, end: 20070228
  2. METOPROLOL SUCCINATE [Suspect]
     Indication: CARDIAC DISORDER
     Dates: start: 20070212, end: 20070228
  3. SEROQUEL [Suspect]
     Indication: SCHIZOPHRENIA
     Dates: start: 20070220, end: 20070228

REACTIONS (2)
  - ANXIETY [None]
  - INCORRECT DOSE ADMINISTERED [None]
